FAERS Safety Report 6456692-9 (Version None)
Quarter: 2009Q4

REPORT INFORMATION
  Report Type: 
  Country: None (occurrence: None)
  Receive Date: 20091124
  Receipt Date: 20091124
  Transmission Date: 20100525
  Serious: No
  Sender: FDA-Public Use
  Company Number: None

PATIENT
  Age: 72 Year
  Sex: Male
  Weight: 109 kg

DRUGS (1)
  1. FEBUXOSTAT [Suspect]
     Dosage: 40 MG EVERY DAY PO
     Route: 048
     Dates: start: 20090421, end: 20090513

REACTIONS (3)
  - ARTHRALGIA [None]
  - BACK PAIN [None]
  - URINARY RETENTION [None]
